FAERS Safety Report 14695608 (Version 1)
Quarter: 2018Q1

REPORT INFORMATION
  Report Type: Spontaneous
  Country: US (occurrence: US)
  Receive Date: 20180329
  Receipt Date: 20180329
  Transmission Date: 20180509
  Serious: Yes (Hospitalization)
  Sender: FDA-Public Use
  Company Number: US-TEVA-2018-US-874841

PATIENT
  Age: 75 Year
  Sex: Male

DRUGS (3)
  1. NOREPINEPHRINE. [Suspect]
     Active Substance: NOREPINEPHRINE
     Indication: BLOOD PRESSURE MANAGEMENT
     Dosage: 1 MICROG/MIN (MAX 30 MICROG/MIN)
     Route: 065
  2. DOPAMINE [Suspect]
     Active Substance: DOPAMINE\DOPAMINE HYDROCHLORIDE
     Indication: BLOOD PRESSURE MANAGEMENT
     Dosage: 2 MICROG/KG/MIN (MAX 20 MICROG/KG/MIN)
     Route: 065
  3. VASOPRESSIN. [Suspect]
     Active Substance: VASOPRESSIN
     Indication: BLOOD PRESSURE MANAGEMENT
     Dosage: 2.4 UNITS/HOUR INFUSION
     Route: 050

REACTIONS (1)
  - Gangrene [Recovered/Resolved with Sequelae]
